FAERS Safety Report 5919529-X (Version None)
Quarter: 2008Q3

REPORT INFORMATION
  Report Type: 
  Country: None (occurrence: None)
  Receive Date: 20080909
  Receipt Date: 20070717
  Transmission Date: 20090109
  Serious: Yes (Death)
  Sender: FDA-Public Use
  Company Number: 163-20785-07050197

PATIENT
  Age: 54 Year
  Sex: Male

DRUGS (9)
  1. THALOMID [Suspect]
     Indication: MULTIPLE MYELOMA
     Dosage: 200-100 MG, DAILY, ORAL ; 100 MG, DAILY, ORAL ; 100 MG, DAILY, ORAL
     Route: 048
     Dates: start: 20050616, end: 20050701
  2. THALOMID [Suspect]
     Indication: MULTIPLE MYELOMA
     Dosage: 200-100 MG, DAILY, ORAL ; 100 MG, DAILY, ORAL ; 100 MG, DAILY, ORAL
     Route: 048
     Dates: start: 20070105, end: 20070501
  3. THALOMID [Suspect]
     Indication: MULTIPLE MYELOMA
     Dosage: 200-100 MG, DAILY, ORAL ; 100 MG, DAILY, ORAL ; 100 MG, DAILY, ORAL
     Route: 048
     Dates: start: 20070412
  4. ERYTHROPOETIN (EPOETIN ALFA) [Suspect]
     Indication: DRUG USE FOR UNKNOWN INDICATION
  5. ACYCLOVIR [Concomitant]
  6. FILGRASTIM (FILGRASTIM) [Concomitant]
  7. DILAUDID [Concomitant]
  8. ALPRAZOLAM [Concomitant]
  9. FENTANYL (FENTANYL) (POULTICE OR PATCH) [Concomitant]

REACTIONS (3)
  - DISEASE PROGRESSION [None]
  - MULTIPLE MYELOMA [None]
  - PANCYTOPENIA [None]
